FAERS Safety Report 5011082-0 (Version None)
Quarter: 2006Q2

REPORT INFORMATION
  Report Type: 
  Country: None (occurrence: None)
  Receive Date: 20060523
  Receipt Date: 20060520
  Transmission Date: 20061013
  Serious: Yes (Death)
  Sender: FDA-Public Use
  Company Number: 223566

PATIENT
  Age: 68 Year
  Sex: Female
  Weight: 74.027 kg

DRUGS (10)
  1. AVASTIN [Suspect]
     Indication: COLON CANCER
     Dosage: 560 MG Q3W INTRAVENOUS
     Route: 042
     Dates: start: 20050704, end: 20051228
  2. OXALIPLATIN (OXALIPLATIN) [Suspect]
     Indication: COLON CANCER
     Dosage: 165 MGQ2W INTRAVENOUS
     Route: 042
     Dates: start: 20050704, end: 20051228
  3. LEUCOVORIN CALCIUM [Suspect]
     Indication: COLON CANCER
     Dosage: 390 MG Q2W INTRAVENOUS
     Route: 042
     Dates: start: 20050704, end: 20051228
  4. FLUOROURACIL [Suspect]
     Indication: COLON CANCER
     Dosage: 580 MG Q2W IV BOLUS
     Route: 040
     Dates: start: 20050704, end: 20051228
  5. GEMFIBROZIL [Concomitant]
  6. METFORMIN [Concomitant]
  7. RABEPRAZOLE SODIUM [Concomitant]
  8. MYLANTA (ALUMINUM HYDROXIDE, MAGNEISUM HYDROXIDE, SIMETHICONE) [Concomitant]
  9. LOPID [Concomitant]
  10. DIAFORMIN (METFORMIN) [Concomitant]

REACTIONS (1)
  - OESOPHAGITIS [None]
